FAERS Safety Report 9690505 (Version 1)
Quarter: 2013Q4

REPORT INFORMATION
  Report Type: Spontaneous
  Country: CA (occurrence: None)
  Receive Date: 20131113
  Receipt Date: 20131113
  Transmission Date: 20140711
  Serious: Yes (Hospitalization)
  Sender: FDA-Public Use
  Company Number: CA-009057

PATIENT
  Age: 82 Year
  Sex: Male

DRUGS (2)
  1. FIRMAGON [Suspect]
     Indication: PROSTATE CANCER
     Route: 058
     Dates: start: 2011
  2. FRAGMIN [Concomitant]

REACTIONS (4)
  - Injection site pain [None]
  - Nausea [None]
  - Fatigue [None]
  - Urinary retention [None]
